FAERS Safety Report 7212324-3 (Version None)
Quarter: 2011Q1

REPORT INFORMATION
  Report Type: 
  Country: None (occurrence: None)
  Receive Date: 20110106
  Receipt Date: 20110104
  Transmission Date: 20110831
  Serious: Yes (Hospitalization, Other)
  Sender: FDA-Public Use
  Company Number: GB-ASTRAZENECA-2010SE58142

PATIENT
  Age: 20396 Day
  Sex: Female

DRUGS (4)
  1. ALVERINE CITRATE [Concomitant]
  2. CALCICHEW D3 FORTE [Concomitant]
     Dosage: TWO PER DAY
  3. ARIMIDEX [Suspect]
     Indication: NEOPLASM PROPHYLAXIS
     Route: 048
     Dates: start: 20100826
  4. LEVOTHYROXINE SODIUM [Concomitant]

REACTIONS (1)
  - COLON CANCER [None]
